FAERS Safety Report 14613328 (Version 2)
Quarter: 2018Q1

REPORT INFORMATION
  Report Type: Spontaneous
  Country: US (occurrence: US)
  Receive Date: 20180308
  Receipt Date: 20180314
  Transmission Date: 20180509
  Serious: Yes (Other)
  Sender: FDA-Public Use
  Company Number: US-PFIZER INC-2018090988

PATIENT
  Age: 47 Year
  Sex: Female

DRUGS (7)
  1. HEPARIN [Concomitant]
     Active Substance: HEPARIN SODIUM
     Indication: UTERINE LEIOMYOMA EMBOLISATION
     Dosage: 4000 IU, UNK
     Route: 013
  2. SODIUM CHLORIDE. [Suspect]
     Active Substance: SODIUM CHLORIDE
     Indication: VASCULAR ACCESS PLACEMENT
     Dosage: UNK
  3. NITROGLYCERIN. [Concomitant]
     Active Substance: NITROGLYCERIN
     Indication: UTERINE LEIOMYOMA EMBOLISATION
     Dosage: 200 UG, UNK
     Route: 013
  4. NITROGLYCERIN. [Concomitant]
     Active Substance: NITROGLYCERIN
     Dosage: AN ADDITIONAL 200 UG NITROGLYCERIN WAS ADMINISTERED VIA THE RADIAL ACCESS.
     Route: 013
  5. LIDOCAINE. [Concomitant]
     Active Substance: LIDOCAINE
     Indication: ANAESTHESIA
     Dosage: UNK
  6. VERAPAMIL [Concomitant]
     Active Substance: VERAPAMIL HYDROCHLORIDE
     Indication: UTERINE LEIOMYOMA EMBOLISATION
     Dosage: 2.5 MG, UNK
     Route: 013
  7. SOLU-MEDROL [Concomitant]
     Active Substance: METHYLPREDNISOLONE SODIUM SUCCINATE
     Dosage: 125 MG, UNK
     Route: 042

REACTIONS (3)
  - Skin necrosis [Recovered/Resolved]
  - Incorrect drug administration rate [Unknown]
  - Pallor [Recovered/Resolved]
